FAERS Safety Report 8837782 (Version 1)
Quarter: 2012Q4

REPORT INFORMATION
  Report Type: 
  Country: US (occurrence: US)
  Receive Date: 20121012
  Receipt Date: 20121012
  Transmission Date: 20130627
  Serious: No
  Sender: FDA-Public Use
  Company Number: US-GLAXOSMITHKLINE-A0982363A

PATIENT
  Age: 83 Year
  Sex: Male

DRUGS (5)
  1. JALYN [Suspect]
     Indication: BENIGN PROSTATIC HYPERPLASIA
     Dosage: .5MG Per day
     Route: 048
     Dates: start: 20110314
  2. LISINOPRIL [Concomitant]
  3. ASPIRIN [Concomitant]
  4. INDOMETHACIN [Concomitant]
  5. DIAZEPAM [Concomitant]

REACTIONS (3)
  - Drug ineffective [Not Recovered/Not Resolved]
  - Dysuria [Unknown]
  - Product quality issue [Unknown]
